FAERS Safety Report 5038846-1 (Version None)
Quarter: 2006Q2

REPORT INFORMATION
  Report Type: 
  Country: None (occurrence: None)
  Receive Date: 20060629
  Receipt Date: 20060605
  Transmission Date: 20061013
  Serious: Yes (Hospitalization, Disabling, Other)
  Sender: FDA-Public Use
  Company Number: 2006AP02913

PATIENT
  Age: 11258 Day

DRUGS (1)
  1. IRESSA [Suspect]
     Dosage: STUDY THERAPY WITHDRAWN DUE TO ASCITES
     Route: 048
     Dates: end: 20020428

REACTIONS (2)
  - ASCITES [None]
  - PYREXIA [None]
